FAERS Safety Report 16786036 (Version 2)
Quarter: 2020Q4

REPORT INFORMATION
  Report Type: Spontaneous
  Country: US (occurrence: US)
  Receive Date: 20190909
  Receipt Date: 20201124
  Transmission Date: 20210113
  Serious: Yes (Hospitalization, Other)
  Sender: FDA-Public Use
  Company Number: US-MYLANLABS-2019M1082788

PATIENT
  Age: 6 Year
  Sex: Female

DRUGS (4)
  1. CHILDREN MULTIVITAMINS [Concomitant]
     Indication: VITAMIN SUPPLEMENTATION
     Dosage: UNK
     Route: 065
  2. NALOXONE [Suspect]
     Active Substance: NALOXONE
     Indication: SINUS BRADYCARDIA
     Dosage: 3 MILLIGRAM
     Route: 042
  3. GUANFACINE. [Suspect]
     Active Substance: GUANFACINE
     Indication: ATTENTION DEFICIT HYPERACTIVITY DISORDER
     Dosage: DOSE: 2MG EVERY MORNING AND 1MG EVERY EVENING
     Route: 048
  4. CLONIDINE. [Concomitant]
     Active Substance: CLONIDINE
     Indication: ATTENTION DEFICIT HYPERACTIVITY DISORDER
     Dosage: 0.1 MILLIGRAM, QD
     Route: 048

REACTIONS (8)
  - Drug ineffective [Unknown]
  - Lethargy [Recovered/Resolved]
  - Overdose [Recovered/Resolved]
  - Bradycardia [Recovered/Resolved]
  - Vomiting [Recovered/Resolved]
  - Somnolence [Recovered/Resolved]
  - Accidental exposure to product by child [Recovered/Resolved]
  - Toxicity to various agents [Recovered/Resolved]
